FAERS Safety Report 11010081 (Version 1)
Quarter: 2015Q2

REPORT INFORMATION
  Report Type: Spontaneous
  Country: IT (occurrence: IT)
  Receive Date: 20150410
  Receipt Date: 20150410
  Transmission Date: 20150821
  Serious: Yes (Other)
  Sender: FDA-Public Use
  Company Number: IT-SA-2015SA045050

PATIENT
  Age: 54 Year
  Sex: Female

DRUGS (12)
  1. SIVASTIN [Concomitant]
     Active Substance: SIMVASTATIN
     Indication: DYSLIPIDAEMIA
     Dosage: STRENGTH: 40MG DOSE:1 UNIT(S)
     Route: 048
  2. LANSOPRAZOLE. [Concomitant]
     Active Substance: LANSOPRAZOLE
     Dosage: STRENGTH: 30 MG DOSE:2 UNIT(S)
     Route: 048
  3. LIBRADIN [Concomitant]
     Active Substance: BARNIDIPINE HYDROCHLORIDE
     Indication: HYPERTENSION
     Dosage: 28 MODIFIED-RELEASE CAPSULES IN BLISTER PVC / AL OF 10 MG DOSE:1 UNIT(S)
     Route: 048
  4. ARANESP [Concomitant]
     Active Substance: DARBEPOETIN ALFA
     Indication: ANAEMIA
     Dosage: 20 MCG SOLUTION FOR INJECTION 1 PRE-FILLED SYRINGE 0.5 ML SUBCUTANEOUS AND INTRAVENOUS USE
  5. ALLOPURINOL. [Concomitant]
     Active Substance: ALLOPURINOL
     Dosage: STRENGTH: 300MG DOSE:0.5 UNIT(S)
     Route: 048
  6. LANTUS [Concomitant]
     Active Substance: INSULIN GLARGINE
     Indication: TYPE 2 DIABETES MELLITUS
     Route: 058
  7. OPTICLICK [Concomitant]
     Active Substance: DEVICE
     Indication: TYPE 2 DIABETES MELLITUS
  8. PHOSLO [Concomitant]
     Active Substance: CALCIUM ACETATE
     Indication: HYPERPHOSPHATAEMIA
     Dosage: 667 MG HARD CAPSULES 200 CAPSULES IN BOTTLE HDPE DOSE:4 UNIT(S)
     Route: 048
  9. LASIX [Concomitant]
     Active Substance: FUROSEMIDE
     Indication: RENAL FAILURE
     Dosage: STRENGTH: 25MG DOSE:6 UNIT(S)
     Route: 048
  10. CARDIOASPIRIN [Concomitant]
     Active Substance: ASPIRIN
     Dosage: STRENGTH: 100MG DOSE:1 UNIT(S)
     Route: 048
  11. APIDRA [Suspect]
     Active Substance: INSULIN GLULISINE
     Indication: TYPE 2 DIABETES MELLITUS
     Route: 058
  12. FISIOTENS [Concomitant]
     Indication: HYPERTENSION
     Dosage: STRENGTH: 0.2MG DOSE:4 UNIT(S)
     Route: 048

REACTIONS (4)
  - Presyncope [Recovered/Resolved]
  - Asthenia [Recovered/Resolved]
  - Muscle spasms [Recovered/Resolved]
  - Hypoglycaemia [Recovered/Resolved]

NARRATIVE: CASE EVENT DATE: 20120913
